FAERS Safety Report 8901309 (Version 1)
Quarter: 2012Q4

REPORT INFORMATION
  Report Type: 
  Country: US (occurrence: US)
  Receive Date: 20121109
  Receipt Date: 20121109
  Transmission Date: 20130627
  Serious: No
  Sender: FDA-Public Use
  Company Number: US-PFIZER INC-2012278609

PATIENT

DRUGS (3)
  1. CISPLATIN [Suspect]
     Dosage: UNK
  2. ETOPOSIDE [Suspect]
     Dosage: on days 1-5 for each chemotherapy cycle
  3. BLEOMYCIN [Suspect]
     Dosage: once weekly for 5 doses

REACTIONS (2)
  - Nausea [Not Recovered/Not Resolved]
  - Vomiting [Not Recovered/Not Resolved]
